FAERS Safety Report 22796509 (Version 7)
Quarter: 2024Q2

REPORT INFORMATION
  Report Type: Report from Study
  Country: US (occurrence: US)
  Receive Date: 20230808
  Receipt Date: 20240515
  Transmission Date: 20240716
  Serious: No
  Sender: FDA-Public Use
  Company Number: US-ACADIA PHARMACEUTICALS INC.-ACA-2023-TRF-002971

PATIENT
  Age: 20 Year
  Sex: Female

DRUGS (15)
  1. DAYBUE [Suspect]
     Active Substance: TROFINETIDE
     Indication: Rett syndrome
     Dosage: 15 MILLILITER, BID VIA G-TUBE
  2. DAYBUE [Suspect]
     Active Substance: TROFINETIDE
     Dosage: 60 MILLILITER, BID VIA G-TUBE
  3. DAYBUE [Suspect]
     Active Substance: TROFINETIDE
     Dosage: 40 MILLILITER, BID VIA G-TUBE
  4. DAYBUE [Suspect]
     Active Substance: TROFINETIDE
     Dosage: 60 MILLILITER, BID, VIA G TUBE
  5. DAYBUE [Suspect]
     Active Substance: TROFINETIDE
     Dosage: 40 MILLILITER, BID
     Route: 048
  6. VIMPAT [Concomitant]
     Active Substance: LACOSAMIDE
  7. EPIDIOLEX [Concomitant]
     Active Substance: CANNABIDIOL
  8. ONFI [Concomitant]
     Active Substance: CLOBAZAM
  9. HYDROCORTISONE [Concomitant]
     Active Substance: HYDROCORTISONE
  10. XARELTO [Concomitant]
     Active Substance: RIVAROXABAN
  11. TOPAMAX [Concomitant]
     Active Substance: TOPIRAMATE
  12. KEPPRA [Concomitant]
     Active Substance: LEVETIRACETAM
  13. VALTOCO [Concomitant]
     Active Substance: DIAZEPAM
  14. ALBUTEROL [Concomitant]
     Active Substance: ALBUTEROL
     Dosage: NEBULIZER
  15. TOPIRAMATE [Concomitant]
     Active Substance: TOPIRAMATE

REACTIONS (7)
  - Underdose [Not Recovered/Not Resolved]
  - Diarrhoea [Not Recovered/Not Resolved]
  - Diarrhoea [Recovering/Resolving]
  - Diarrhoea [Recovering/Resolving]
  - Diarrhoea [Not Recovered/Not Resolved]
  - Diarrhoea [Not Recovered/Not Resolved]
  - Diarrhoea [Not Recovered/Not Resolved]

NARRATIVE: CASE EVENT DATE: 20230731
